FAERS Safety Report 9315432 (Version 3)
Quarter: 2013Q3

REPORT INFORMATION
  Report Type: Report from Study
  Country: AU (occurrence: AU)
  Receive Date: 20130529
  Receipt Date: 20130718
  Transmission Date: 20140515
  Serious: Yes (Other)
  Sender: FDA-Public Use
  Company Number: AU-ROCHE-1226873

PATIENT
  Age: 68 Year
  Sex: Male
  Weight: 91.5 kg

DRUGS (3)
  1. RITUXIMAB [Suspect]
     Indication: CHRONIC LYMPHOCYTIC LEUKAEMIA
     Dosage: RECENT DOSE PRIOR TO SAE: 11/JAN/2012
     Route: 042
     Dates: start: 20110817
  2. FLUDARABINE [Suspect]
     Indication: CHRONIC LYMPHOCYTIC LEUKAEMIA
     Dosage: RECENT DOSE PRIOR TO SAE: 13/JAN/2012
     Route: 048
     Dates: start: 20110817
  3. CYCLOPHOSPHAMIDE [Suspect]
     Indication: CHRONIC LYMPHOCYTIC LEUKAEMIA
     Dosage: RECENT DOSE PRIOR TO SAE: 13/JAN/2012
     Route: 048
     Dates: start: 20110817

REACTIONS (1)
  - Malignant melanoma [Recovered/Resolved]
